FAERS Safety Report 8784411 (Version 2)
Quarter: 2012Q4

REPORT INFORMATION
  Report Type: 
  Country: VE (occurrence: VE)
  Receive Date: 20120913
  Receipt Date: 20120926
  Transmission Date: 20130627
  Serious: Yes (Other)
  Sender: FDA-Public Use
  Company Number: VE-PFIZER INC-2012225201

PATIENT
  Age: 86 Year
  Sex: Male

DRUGS (3)
  1. LIPITOR [Suspect]
     Dosage: 20 mg, 2x/day
     Route: 048
  2. PLAVIX [Concomitant]
     Dosage: 75 mg, 1x/day
     Route: 048
  3. ACCUPRIL [Concomitant]
     Dosage: 20 mg, 1x/day
     Route: 048

REACTIONS (1)
  - Cerebrovascular accident [Recovered/Resolved with Sequelae]
